FAERS Safety Report 15920712 (Version 1)
Quarter: 2019Q1

REPORT INFORMATION
  Report Type: Spontaneous
  Country: FR (occurrence: FR)
  Receive Date: 20190205
  Receipt Date: 20190205
  Transmission Date: 20190417
  Serious: Yes (Hospitalization)
  Sender: FDA-Public Use
  Company Number: FR-MYLANLABS-2019M1009603

PATIENT
  Age: 69 Year
  Sex: Female
  Weight: 70 kg

DRUGS (14)
  1. CLOMIPRAMINE MYLAN 75 MG, COMPRIM? PELLICUL? S?CABLE [Suspect]
     Active Substance: CLOMIPRAMINE
     Indication: NEURALGIA
     Dosage: 1 DOSAGE FORM, QD
     Route: 048
  2. LOVENOX [Concomitant]
     Active Substance: ENOXAPARIN SODIUM
  3. VILDAGLIPTINE [Concomitant]
     Active Substance: VILDAGLIPTIN
  4. CIPROFLOXACINE ARROW [Suspect]
     Active Substance: CIPROFLOXACIN
     Indication: PYELONEPHRITIS
     Dosage: 2 DOSAGE FORM, QD
     Route: 048
     Dates: start: 20180629
  5. ACIDE FOLIQUE [Concomitant]
     Active Substance: FOLIC ACID
  6. KARDEGIC [Concomitant]
     Active Substance: ASPIRIN DL-LYSINE
  7. LYRICA [Suspect]
     Active Substance: PREGABALIN
     Indication: NEURALGIA
     Dosage: 400 MILLIGRAM, QD
     Route: 048
  8. MOVICOL [Concomitant]
     Active Substance: POLYETHYLENE GLYCOL 3350\POTASSIUM CHLORIDE\SODIUM BICARBONATE\SODIUM CHLORIDE
  9. PIPERACILLIN AND TAZOBACTAM [Suspect]
     Active Substance: PIPERACILLIN SODIUM\TAZOBACTAM SODIUM
     Indication: PYELONEPHRITIS
     Dosage: 3 DOSAGE FORM, QD
     Route: 042
     Dates: start: 20180629, end: 20180703
  10. METFORMINE                         /00082701/ [Concomitant]
     Active Substance: METFORMIN HYDROCHLORIDE
  11. FUMAFER [Concomitant]
     Active Substance: FERROUS FUMARATE
  12. BACTRIM [Suspect]
     Active Substance: SULFAMETHOXAZOLE\TRIMETHOPRIM
     Indication: PYELONEPHRITIS
     Dosage: DOSAGE: 800MG/160MG
     Route: 048
     Dates: start: 20180629, end: 20180702
  13. ATORVASTATINE ARROW [Suspect]
     Active Substance: ATORVASTATIN
     Indication: DYSLIPIDAEMIA
     Dosage: 1 DOSAGE FORM, QD
     Route: 048
     Dates: end: 20180702
  14. INSULATARD                         /00646002/ [Concomitant]
     Active Substance: INSULIN HUMAN

REACTIONS (2)
  - Encephalopathy [Recovered/Resolved]
  - Myoclonus [Recovered/Resolved]

NARRATIVE: CASE EVENT DATE: 20180702
